FAERS Safety Report 5423586-7 (Version None)
Quarter: 2007Q3

REPORT INFORMATION
  Report Type: 
  Country: None (occurrence: None)
  Receive Date: 20070727
  Receipt Date: 20070612
  Transmission Date: 20080115
  Serious: No
  Sender: FDA-Public Use
  Company Number: 264509

PATIENT
  Age: 37 Year
  Sex: Female

DRUGS (3)
  1. LEVEMIR [Suspect]
     Indication: INSULIN-REQUIRING TYPE II DIABETES MELLITUS
     Dosage: 42 IU, QD, SUBCUTANEOUS
     Route: 058
     Dates: start: 20070418
  2. ATACAND [Concomitant]
  3. ZOCOR [Concomitant]

REACTIONS (1)
  - WEIGHT INCREASED [None]
